FAERS Safety Report 18641111 (Version 1)
Quarter: 2020Q4

REPORT INFORMATION
  Report Type: Report from Study
  Country: None (occurrence: US)
  Receive Date: 20201221
  Receipt Date: 20201221
  Transmission Date: 20210114
  Serious: Yes (Other)
  Sender: FDA-Public Use
  Company Number: US-ABBVIE-20K-163-3690615-00

PATIENT
  Age: 31 Year
  Sex: Female
  Weight: 101.24 kg

DRUGS (1)
  1. HUMIRA [Suspect]
     Active Substance: ADALIMUMAB
     Indication: HIDRADENITIS
     Dosage: HUMIRA CF
     Route: 058
     Dates: start: 201810

REACTIONS (4)
  - Live birth [Unknown]
  - Maternal exposure during pregnancy [Unknown]
  - Foetal dystocia [Recovered/Resolved]
  - Liver disorder [Not Recovered/Not Resolved]

NARRATIVE: CASE EVENT DATE: 202004
